FAERS Safety Report 13937066 (Version 1)
Quarter: 2017Q3

REPORT INFORMATION
  Report Type: Spontaneous
  Country: US (occurrence: US)
  Receive Date: 20170905
  Receipt Date: 20170905
  Transmission Date: 20171127
  Serious: No
  Sender: FDA-Public Use
  Company Number: US-BAYER-2017-168809

PATIENT
  Age: 80 Year
  Sex: Female
  Weight: 62 kg

DRUGS (5)
  1. BAYER LOW DOSE [Concomitant]
     Active Substance: ASPIRIN
     Indication: PAIN
     Route: 048
  2. ALEVE [Suspect]
     Active Substance: NAPROXEN SODIUM
     Indication: PAIN IN EXTREMITY
  3. SYNTHROID [Concomitant]
     Active Substance: LEVOTHYROXINE SODIUM
  4. ALEVE [Suspect]
     Active Substance: NAPROXEN SODIUM
     Indication: PAIN IN EXTREMITY
     Dosage: 1 DF, UNK
     Route: 048
  5. AVAPRO [Concomitant]
     Active Substance: IRBESARTAN

REACTIONS (1)
  - Drug ineffective [Unknown]

NARRATIVE: CASE EVENT DATE: 20170901
